FAERS Safety Report 18187245 (Version 1)
Quarter: 2020Q3

REPORT INFORMATION
  Report Type: Spontaneous
  Country: US (occurrence: US)
  Receive Date: 20200824
  Receipt Date: 20200824
  Transmission Date: 20201103
  Serious: No
  Sender: FDA-Public Use
  Company Number: US-PFIZER INC-2020326096

PATIENT
  Age: 64 Year
  Sex: Female

DRUGS (2)
  1. ESBRIET [Concomitant]
     Active Substance: PIRFENIDONE
     Dosage: UNK
  2. XANAX [Suspect]
     Active Substance: ALPRAZOLAM
     Indication: ANXIETY
     Dosage: UNK

REACTIONS (1)
  - Memory impairment [Unknown]
